FAERS Safety Report 7110889-3 (Version None)
Quarter: 2010Q4

REPORT INFORMATION
  Report Type: 
  Country: None (occurrence: None)
  Receive Date: 20101118
  Receipt Date: 20101110
  Transmission Date: 20110411
  Serious: Yes (Hospitalization)
  Sender: FDA-Public Use
  Company Number: PHHO2010FR16973

PATIENT
  Sex: Female
  Weight: 76 kg

DRUGS (4)
  1. NEORAL [Suspect]
     Indication: RENAL TRANSPLANT
     Dosage: 280 MG, BID
     Route: 048
     Dates: start: 20101101, end: 20101106
  2. MYFORTIC [Concomitant]
     Indication: RENAL TRANSPLANT
     Dosage: UNK
  3. SOLU-MEDROL [Concomitant]
     Indication: RENAL TRANSPLANT
     Dosage: UNK
  4. SIMULECT [Concomitant]
     Indication: RENAL TRANSPLANT

REACTIONS (5)
  - ANURIA [None]
  - COMPLICATIONS OF TRANSPLANTED KIDNEY [None]
  - POLYURIA [None]
  - RENAL FAILURE [None]
  - RENAL TUBULAR DISORDER [None]
